FAERS Safety Report 19539803 (Version 3)
Quarter: 2024Q4

REPORT INFORMATION
  Report Type: Report from Study
  Country: AT (occurrence: AT)
  Receive Date: 20210713
  Receipt Date: 20241003
  Transmission Date: 20250115
  Serious: Yes (Death)
  Sender: AMGEN
  Company Number: AT-CELLTRION HEALTHCARE HUNGARY KFT-2019AT023552

PATIENT
  Age: 62 Year
  Sex: Female
  Weight: 130.8 kg

DRUGS (14)
  1. TRASTUZUMAB [Suspect]
     Active Substance: TRASTUZUMAB
     Indication: HER2 positive breast cancer
     Dosage: 1040 MILLIGRAM, Q3WK
     Route: 042
     Dates: start: 20190306, end: 20190619
  2. DOCETAXEL [Suspect]
     Active Substance: DOCETAXEL
     Indication: HER2 positive breast cancer
     Dosage: 127 MILLIGRAM, Q3WK
     Route: 042
     Dates: start: 20190306, end: 20190528
  3. PERTUZUMAB [Suspect]
     Active Substance: PERTUZUMAB
     Indication: HER2 positive breast cancer
     Dosage: 840 MILLIGRAM, Q3WK
     Route: 042
     Dates: start: 20190306, end: 20190619
  4. HERCEPTIN [Suspect]
     Active Substance: TRASTUZUMAB
     Indication: HER2 positive breast cancer
     Dosage: 1040 MILLIGRAM, Q3WK
     Route: 042
     Dates: start: 20190306, end: 20190619
  5. ACETAMINOPHEN [Concomitant]
     Active Substance: ACETAMINOPHEN
     Dosage: UNK
     Dates: start: 20190306, end: 20190707
  6. POLYETHYLENE GLYCOL 4000 [Concomitant]
     Active Substance: POLYETHYLENE GLYCOL 4000
     Dosage: UNK
     Dates: start: 20190306, end: 20190707
  7. DEXAMETHASONE [Concomitant]
     Active Substance: DEXAMETHASONE
     Dosage: UNK
     Dates: start: 20190306, end: 20190707
  8. ZOFRAN [Concomitant]
     Active Substance: ONDANSETRON HYDROCHLORIDE
     Dosage: UNK
     Dates: start: 20190306, end: 20190707
  9. DIOSMIN\HESPERIDIN [Concomitant]
     Active Substance: DIOSMIN\HESPERIDIN
     Dosage: UNK
     Dates: end: 20190707
  10. ENALAPRIL\HYDROCHLOROTHIAZIDE [Concomitant]
     Active Substance: ENALAPRIL\HYDROCHLOROTHIAZIDE
     Dosage: UNK
     Dates: end: 20190707
  11. PANTOPRAZOLE SODIUM [Concomitant]
     Active Substance: PANTOPRAZOLE SODIUM
     Dosage: UNK
     Dates: start: 20190306, end: 20190707
  12. DIPHENHYDRAMINE HYDROCHLORIDE [Concomitant]
     Active Substance: DIPHENHYDRAMINE HYDROCHLORIDE
     Dosage: UNK
     Dates: start: 20190306, end: 20190707
  13. EMEND [Concomitant]
     Active Substance: APREPITANT
     Dosage: UNK
     Dates: start: 20190306, end: 20190707
  14. ZOFRAN [Concomitant]
     Active Substance: ONDANSETRON HYDROCHLORIDE
     Dosage: UNK
     Dates: start: 20190306, end: 20190707

REACTIONS (2)
  - Pneumonia [Fatal]
  - Device related infection [Fatal]

NARRATIVE: CASE EVENT DATE: 20190628
